FAERS Safety Report 4458396-0 (Version None)
Quarter: 2004Q3

REPORT INFORMATION
  Report Type: 
  Country: None (occurrence: None)
  Receive Date: 20040924
  Receipt Date: 20040920
  Transmission Date: 20050211
  Serious: Yes (Life-Threatening, Disabling)
  Sender: FDA-Public Use
  Company Number: US-MERCK-0409USA01693

PATIENT
  Age: 53 Year
  Sex: Female

DRUGS (5)
  1. CORTICOSTEROIDS (UNSPECIFIED) [Concomitant]
     Route: 065
  2. PROTONIX [Concomitant]
     Route: 065
  3. VIOXX [Suspect]
     Indication: BACK PAIN
     Route: 048
     Dates: start: 20040810, end: 20040901
  4. SUNSCREEN (UNSPECIFIED) [Concomitant]
     Route: 065
  5. TRIAMCINOLONE [Concomitant]
     Route: 065

REACTIONS (6)
  - BLINDNESS [None]
  - DYSPNOEA [None]
  - PHOTOSENSITIVITY REACTION [None]
  - PRURITUS [None]
  - SKIN DEPIGMENTATION [None]
  - SWELLING [None]
